FAERS Safety Report 24111092 (Version 3)
Quarter: 2025Q2

REPORT INFORMATION
  Report Type: Report from Study
  Country: US (occurrence: US)
  Receive Date: 20240718
  Receipt Date: 20250425
  Transmission Date: 20250717
  Serious: Yes (Other)
  Sender: ROCHE
  Company Number: US-ROCHE-10000030181

PATIENT
  Age: 69 Year
  Sex: Female
  Weight: 88.45 kg

DRUGS (27)
  1. ACTEMRA [Suspect]
     Active Substance: TOCILIZUMAB
     Indication: Rheumatoid arthritis
     Dosage: INFUSE 384.7MG INTRAVENOUSLY EVERY 4 WEEK(S)
     Route: 042
  2. ACTEMRA [Suspect]
     Active Substance: TOCILIZUMAB
     Indication: Rheumatoid arthritis
     Dosage: INJECT THE CONTENTS OF ONE DEVICE UNDER THE SKIN ONCE WEEKLY
     Route: 058
  3. ACTEMRA [Suspect]
     Active Substance: TOCILIZUMAB
     Dosage: 0.9 ML FOUR COUNT
     Route: 058
  4. ACTEMRA [Suspect]
     Active Substance: TOCILIZUMAB
     Route: 058
  5. ELIQUIS [Concomitant]
     Active Substance: APIXABAN
     Indication: Anticoagulant therapy
     Dosage: ONE 5MG TABLET BY MOUTH TWICE A DAY FOR 90 DAYS
     Route: 048
     Dates: start: 202406
  6. CARDIZEM CD [Concomitant]
     Active Substance: DILTIAZEM HYDROCHLORIDE
     Indication: Blood pressure measurement
     Dosage: EXTENDED RELEASE (DILTIAZEM HCL)TABLET
     Route: 048
  7. COREG [Concomitant]
     Active Substance: CARVEDILOL
     Indication: Blood pressure measurement
     Route: 048
  8. ATORVASTATIN [Concomitant]
     Active Substance: ATORVASTATIN
     Indication: Product used for unknown indication
     Route: 048
  9. OMEPRAZOLE [Concomitant]
     Active Substance: OMEPRAZOLE
     Indication: Product used for unknown indication
     Dosage: DELAYED RELEASE
  10. SYNTHROID [Concomitant]
     Active Substance: LEVOTHYROXINE SODIUM
     Indication: Product used for unknown indication
  11. TRELEGY ELLIPTA [Concomitant]
     Active Substance: FLUTICASONE FUROATE\UMECLIDINIUM BROMIDE\VILANTEROL TRIFENATATE
     Indication: Asthma
     Dosage: 100 MCG ONE PUFF ONCE DAILY
     Route: 055
  12. TRELEGY ELLIPTA [Concomitant]
     Active Substance: FLUTICASONE FUROATE\UMECLIDINIUM BROMIDE\VILANTEROL TRIFENATATE
     Route: 055
  13. CELEBREX [Concomitant]
     Active Substance: CELECOXIB
  14. GABAPENTIN [Concomitant]
     Active Substance: GABAPENTIN
     Route: 048
  15. SEROQUEL [Concomitant]
     Active Substance: QUETIAPINE FUMARATE
  16. BUSPIRONE [Concomitant]
     Active Substance: BUSPIRONE HYDROCHLORIDE
  17. VIIBRYD [Concomitant]
     Active Substance: VILAZODONE HYDROCHLORIDE
  18. ALPRAZOLAM [Concomitant]
     Active Substance: ALPRAZOLAM
  19. FOLIC ACID [Concomitant]
     Active Substance: FOLIC ACID
     Route: 048
  20. FENOFIBRATE [Concomitant]
     Active Substance: FENOFIBRATE
     Route: 048
  21. LOSARTAN [Concomitant]
     Active Substance: LOSARTAN
  22. LEVOTHYROXINE [Concomitant]
     Active Substance: LEVOTHYROXINE
  23. LOVASTATIN [Concomitant]
     Active Substance: LOVASTATIN
  24. ONDANSETRON HYDROCHLORIDE [Concomitant]
     Active Substance: ONDANSETRON HYDROCHLORIDE
  25. FLONASE SENSIMIST ALLERGY RELIEF [Concomitant]
     Active Substance: FLUTICASONE FUROATE
  26. ALBUTEROL SULFATE [Concomitant]
     Active Substance: ALBUTEROL SULFATE
     Dosage: 90 MCG/ ACTUATION BREATH ACTIVATED POWDER INHALER
  27. TIZANIDINE [Concomitant]
     Active Substance: TIZANIDINE
     Dosage: TAKE 1 TABLET BY MOUTH EVERY NIGHT AT BEDTIME
     Route: 048

REACTIONS (2)
  - Cerebrovascular accident [Not Recovered/Not Resolved]
  - Off label use [Unknown]

NARRATIVE: CASE EVENT DATE: 20240601
